FAERS Safety Report 8193780-3 (Version None)
Quarter: 2012Q1

REPORT INFORMATION
  Report Type: 
  Country: None (occurrence: None)
  Receive Date: 20120308
  Receipt Date: 20120228
  Transmission Date: 20120608
  Serious: Yes (Hospitalization)
  Sender: FDA-Public Use
  Company Number: DE-BRISTOL-MYERS SQUIBB COMPANY-16435430

PATIENT
  Age: 64 Year
  Sex: Female
  Weight: 62 kg

DRUGS (6)
  1. NEXIUM [Concomitant]
     Indication: ANTACID THERAPY
     Dosage: 1DF=40UNITS NOS
     Dates: start: 20120213
  2. LEVOFLOXACIN [Suspect]
     Indication: ANTIBIOTIC THERAPY
     Dosage: 1DF=500UNITS NOS
     Dates: start: 20120222
  3. FLUOROURACIL [Suspect]
     Indication: HEAD AND NECK CANCER METASTATIC
     Dates: start: 20120218
  4. NOVALGIN [Concomitant]
     Indication: PAIN
     Dosage: 1DF=2UNITS NOS
     Dates: start: 20100315
  5. CISPLATIN [Suspect]
     Indication: HEAD AND NECK CANCER METASTATIC
     Dates: start: 20120218
  6. CETUXIMAB [Suspect]
     Indication: HEAD AND NECK CANCER METASTATIC
     Dates: start: 20120217

REACTIONS (4)
  - VOMITING [None]
  - DIARRHOEA [None]
  - SYNCOPE [None]
  - HYPOKALAEMIA [None]
